FAERS Safety Report 10016846 (Version 1)
Quarter: 2014Q1

REPORT INFORMATION
  Report Type: Spontaneous
  Country: CA (occurrence: CA)
  Receive Date: 20140318
  Receipt Date: 20140318
  Transmission Date: 20141002
  Serious: Yes (Hospitalization, Other)
  Sender: FDA-Public Use
  Company Number: CA-ROCHE-1365567

PATIENT
  Age: 51 Year
  Sex: Female

DRUGS (9)
  1. XOLAIR [Suspect]
     Indication: ASTHMA
     Route: 058
     Dates: start: 20130710
  2. XOLAIR [Suspect]
     Route: 058
     Dates: start: 20130729
  3. ADVAIR [Concomitant]
  4. SINGULAIR [Concomitant]
  5. REACTINE (CANADA) [Concomitant]
  6. PREDNISONE [Concomitant]
  7. AERIUS [Concomitant]
  8. ATARAX (CANADA) [Concomitant]
  9. NASONEX [Concomitant]

REACTIONS (4)
  - Streptococcal infection [Recovered/Resolved]
  - Clostridium difficile infection [Recovered/Resolved]
  - Herpes zoster [Recovered/Resolved]
  - Headache [Unknown]
